FAERS Safety Report 20947438 (Version 2)
Quarter: 2022Q2

REPORT INFORMATION
  Report Type: Other
  Country: US (occurrence: None)
  Receive Date: 20220610
  Receipt Date: 20220623
  Transmission Date: 20220720
  Serious: Yes (Hospitalization, Other)
  Sender: FDA-Public Use
  Company Number: US-ROCHE-3111981

PATIENT
  Age: 64 Year
  Sex: Male
  Weight: 83.990 kg

DRUGS (16)
  1. OCREVUS [Suspect]
     Active Substance: OCRELIZUMAB
     Indication: Primary progressive multiple sclerosis
     Dosage: 300 MG DAY 1 AND DAY 15
     Route: 042
  2. OCREVUS [Suspect]
     Active Substance: OCRELIZUMAB
     Indication: Multiple sclerosis
  3. OCREVUS [Suspect]
     Active Substance: OCRELIZUMAB
     Indication: Parkinsonism
  4. BACLOFEN [Concomitant]
     Active Substance: BACLOFEN
     Indication: Muscle spasticity
     Route: 048
     Dates: start: 2021
  5. BACLOFEN [Concomitant]
     Active Substance: BACLOFEN
     Route: 048
     Dates: start: 2021
  6. LORAZEPAM [Concomitant]
     Active Substance: LORAZEPAM
     Dosage: PATIENT CUTS 1MG PILL IN HALF AND TAKES TWICE PER DAY
     Route: 048
     Dates: start: 2018
  7. PREGABALIN [Concomitant]
     Active Substance: PREGABALIN
     Route: 048
  8. AMANTADINE [Concomitant]
     Active Substance: AMANTADINE
     Route: 048
     Dates: start: 2013
  9. DULOXETINE [Concomitant]
     Active Substance: DULOXETINE
     Route: 048
  10. ELIQUIS [Concomitant]
     Active Substance: APIXABAN
     Route: 048
     Dates: start: 202110
  11. METHENAMINE HIPPURATE [Concomitant]
     Active Substance: METHENAMINE HIPPURATE
     Route: 048
  12. CARBIDOPA\LEVODOPA [Concomitant]
     Active Substance: CARBIDOPA\LEVODOPA
     Route: 048
  13. NEOMYCIN [Concomitant]
     Active Substance: NEOMYCIN
     Route: 043
  14. DOCUSATE SODIUM [Concomitant]
     Active Substance: DOCUSATE SODIUM
     Route: 048
     Dates: start: 2021
  15. MELATONIN [Concomitant]
     Active Substance: MELATONIN
     Route: 048
  16. VITAMIN C [Concomitant]
     Active Substance: ASCORBIC ACID
     Route: 048
     Dates: start: 2021

REACTIONS (3)
  - COVID-19 [Recovered/Resolved]
  - Urinary tract infection [Recovered/Resolved]
  - Urosepsis [Recovered/Resolved]

NARRATIVE: CASE EVENT DATE: 20210301
